FAERS Safety Report 22795454 (Version 2)
Quarter: 2024Q3

REPORT INFORMATION
  Report Type: Spontaneous
  Country: SE (occurrence: SE)
  Receive Date: 20230807
  Receipt Date: 20240830
  Transmission Date: 20241017
  Serious: Yes (Other)
  Sender: NOVA LABORATORIES
  Company Number: SE-Nova Laboratories Limited-2144548

PATIENT
  Age: 7 Year
  Sex: Male

DRUGS (12)
  1. PURIXAN [Suspect]
     Active Substance: MERCAPTOPURINE
     Indication: T-cell type acute leukaemia
  2. RITUXIMAB [Suspect]
     Active Substance: RITUXIMAB
  3. DEXAMETHASONE [Suspect]
     Active Substance: DEXAMETHASONE
  4. THIOTEPA [Suspect]
     Active Substance: THIOTEPA
  5. DAUNORUBICIN [Suspect]
     Active Substance: DAUNORUBICIN
  6. ASPARAGINASE [Suspect]
     Active Substance: ASPARAGINASE
  7. CYCLOPHOSPHAMIDE [Suspect]
     Active Substance: CYCLOPHOSPHAMIDE
  8. MYCOPHENOLATE MOFETIL [Suspect]
     Active Substance: MYCOPHENOLATE MOFETIL
  9. VINCRISTINE SULFATE [Suspect]
     Active Substance: VINCRISTINE SULFATE
  10. NELARABINE [Suspect]
     Active Substance: NELARABINE
  11. GRAFALON [Suspect]
     Active Substance: LAPINE T-LYMPHOCYTE IMMUNE GLOBULIN
  12. CYTARABINE [Suspect]
     Active Substance: CYTARABINE

REACTIONS (4)
  - Drug ineffective [Unknown]
  - Off label use [Unknown]
  - Acute graft versus host disease in intestine [Unknown]
  - Acute graft versus host disease in skin [Unknown]
